FAERS Safety Report 5455416-1 (Version None)
Quarter: 2007Q3

REPORT INFORMATION
  Report Type: 
  Country: None (occurrence: None)
  Receive Date: 20070918
  Receipt Date: 20070228
  Transmission Date: 20080115
  Serious: Yes (Other)
  Sender: FDA-Public Use
  Company Number: US-ASTRAZENECA-2006UW21146

PATIENT
  Age: 548 Month
  Sex: Female
  Weight: 85 kg

DRUGS (3)
  1. SEROQUEL [Suspect]
     Indication: SLEEP DISORDER
     Dosage: 25-100 MG
     Route: 048
     Dates: start: 20031112, end: 20060120
  2. SEROQUEL [Suspect]
     Indication: MAJOR DEPRESSION
     Dosage: 25-100 MG
     Route: 048
     Dates: start: 20031112, end: 20060120
  3. OTHER PSYCHIATRIC MEDICATION [Concomitant]

REACTIONS (1)
  - PANCREATITIS [None]
